FAERS Safety Report 9844054 (Version 3)
Quarter: 2014Q1

REPORT INFORMATION
  Report Type: Spontaneous
  Country: ZA (occurrence: ZA)
  Receive Date: 20140127
  Receipt Date: 20140305
  Transmission Date: 20141002
  Serious: Yes (Other)
  Sender: FDA-Public Use
  Company Number: ZA-MERCK-1401ZAF010868

PATIENT
  Sex: Male

DRUGS (1)
  1. ELOCON [Suspect]
     Indication: ECZEMA
     Dosage: 4 TO 5 DROPS IN EACH EAR A COUPLE OF TIME A WEEK
     Route: 001
     Dates: start: 2012

REACTIONS (1)
  - Hypoacusis [Unknown]
